FAERS Safety Report 8082547-2 (Version None)
Quarter: 2012Q1

REPORT INFORMATION
  Report Type: 
  Country: None (occurrence: None)
  Receive Date: 20120127
  Receipt Date: 20110222
  Transmission Date: 20120608
  Serious: No
  Sender: FDA-Public Use
  Company Number: US-ABBOTT-11P-163-0706790-00

PATIENT
  Age: 64 Year
  Sex: Female

DRUGS (16)
  1. MULTI-VITAMIN [Concomitant]
     Indication: PRODUCT USED FOR UNKNOWN INDICATION
  2. OMEPRAZOLE [Concomitant]
     Indication: GASTROOESOPHAGEAL REFLUX DISEASE
     Dosage: 40 MG DAILY
  3. ASPIRIN [Concomitant]
     Indication: ISCHAEMIC HEART DISEASE PROPHYLAXIS
     Dosage: 81 MG DAILY
  4. L-CARNITINE [Concomitant]
     Indication: PRODUCT USED FOR UNKNOWN INDICATION
     Dosage: 500 MG DAILY
  5. PRAMIPEXOLE DIHYCHLLORIDE [Concomitant]
     Indication: RESTLESS LEGS SYNDROME
  6. METFFORMIN HYDROCHLORIDE [Concomitant]
     Indication: GLUCOSE TOLERANCE IMPAIRED
     Dosage: 1500 MG DAILY
  7. SIMVASTATIN [Concomitant]
     Indication: BLOOD CHOLESTEROL INCREASED
     Dosage: 10 MG DAILY
  8. CITALOPRAM [Concomitant]
     Indication: DEPRESSION
     Dosage: 20 MG DAILY
  9. LORATADINE [Concomitant]
     Indication: PRURITUS
     Dosage: 10 MG DAILY
  10. OXYGEN [Concomitant]
     Indication: OXYGEN SATURATION DECREASED
     Dosage: AT BEDTIME
  11. HUMIRA [Suspect]
     Indication: RHEUMATOID ARTHRITIS
     Dates: start: 20100801, end: 20101201
  12. 5-HTP [Concomitant]
     Indication: PRODUCT USED FOR UNKNOWN INDICATION
     Dosage: 100 MG DAILY
  13. LISINOPRIL [Concomitant]
     Indication: HYPERTENSION
     Dosage: 10 MG. DAILY
  14. MELATONIN [Concomitant]
     Indication: PRODUCT USED FOR UNKNOWN INDICATION
     Dosage: 3 MG DAILY
  15. ASCORBIC ACID [Concomitant]
     Indication: PRODUCT USED FOR UNKNOWN INDICATION
     Dosage: 500MG DAILY
  16. SUPER B COMPLEX [Concomitant]
     Indication: PRODUCT USED FOR UNKNOWN INDICATION
     Dosage: DAILY

REACTIONS (4)
  - OPEN WOUND [None]
  - DERMATITIS BULLOUS [None]
  - RASH MACULO-PAPULAR [None]
  - STOMATITIS [None]
